FAERS Safety Report 6820043-8 (Version None)
Quarter: 2010Q3

REPORT INFORMATION
  Report Type: 
  Country: None (occurrence: None)
  Receive Date: 20100707
  Receipt Date: 20100629
  Transmission Date: 20110219
  Serious: Yes (Hospitalization)
  Sender: FDA-Public Use
  Company Number: A0865113A

PATIENT
  Sex: Female
  Weight: 48.3 kg

DRUGS (3)
  1. LAPATINIB [Suspect]
     Dosage: 1250MG PER DAY
     Route: 048
     Dates: start: 20100603, end: 20100609
  2. HERCEPTIN [Suspect]
     Dosage: 4MGK WEEKLY
     Route: 042
     Dates: start: 20100603, end: 20100603
  3. DOCETAXEL [Suspect]
     Dosage: 100MGM2 CYCLIC
     Route: 042
     Dates: start: 20100603, end: 20100603

REACTIONS (4)
  - COLITIS [None]
  - DIARRHOEA [None]
  - FATIGUE [None]
  - VOMITING [None]
